FAERS Safety Report 20428133 (Version 1)
Quarter: 2022Q1

REPORT INFORMATION
  Report Type: Spontaneous
  Country: FR (occurrence: FR)
  Receive Date: 20220204
  Receipt Date: 20220204
  Transmission Date: 20220424
  Serious: Yes (Hospitalization)
  Sender: FDA-Public Use
  Company Number: None

PATIENT
  Age: 85 Year
  Sex: Female
  Weight: 71 kg

DRUGS (11)
  1. AMIODARONE [Suspect]
     Active Substance: AMIODARONE
     Indication: Atrial fibrillation
     Dosage: 200MG X3/WEEK
     Route: 065
     Dates: start: 20211109, end: 20211119
  2. PANTOPRAZOLE [Suspect]
     Active Substance: PANTOPRAZOLE
     Route: 065
     Dates: start: 202111, end: 20211115
  3. ACLASTA [Suspect]
     Active Substance: ZOLEDRONIC ACID
     Indication: Osteoporosis
     Dosage: ACLASTA 5 MG, SOLUTION FOR INFUSION
     Route: 065
     Dates: start: 20211109, end: 20211109
  4. INDAPAMIDE [Suspect]
     Active Substance: INDAPAMIDE
     Indication: Hypertension
     Dosage: 200MG X3/WEEK
     Dates: start: 20211109, end: 20211112
  5. ASPIRIN\CLOPIDOGREL [Concomitant]
     Active Substance: ASPIRIN\CLOPIDOGREL
     Dosage: DUOPLAVIN 75 MG/75 MG FILM-COATED TABLETS
  6. NOVATREX [Concomitant]
     Dosage: NOVATREX 2.5 MG, TABLET
  7. LYRICA [Concomitant]
     Active Substance: PREGABALIN
     Dosage: LYRICA 50 MG, CAPSULE
  8. NITROGLYCERIN [Concomitant]
     Active Substance: NITROGLYCERIN
     Dosage: NATISPRAY 0.30 MG/DOSE, SOLUTION FOR ORAL SPRAYING
  9. RAMIPRIL [Concomitant]
     Active Substance: RAMIPRIL
  10. ROSUVASTATIN [Concomitant]
     Active Substance: ROSUVASTATIN
  11. LOXEN [Concomitant]
     Dosage: LOXEN 20 MG, SCORED TABLET

REACTIONS (1)
  - Tubulointerstitial nephritis [Recovered/Resolved with Sequelae]

NARRATIVE: CASE EVENT DATE: 20211112
